FAERS Safety Report 7534939-5 (Version None)
Quarter: 2011Q2

REPORT INFORMATION
  Report Type: 
  Country: None (occurrence: None)
  Receive Date: 20110609
  Receipt Date: 20081211
  Transmission Date: 20111010
  Serious: Yes (Other)
  Sender: FDA-Public Use
  Company Number: PHHY2008IE30472

PATIENT
  Sex: Male

DRUGS (5)
  1. LANSOPRAZOLE [Concomitant]
     Indication: GASTRITIS
     Dosage: 30 MG, QD
     Dates: start: 20081201
  2. KWELLS [Concomitant]
     Dosage: 1 TABLET, QD
     Route: 048
     Dates: start: 20081201
  3. CLOZAPINE [Suspect]
     Dosage: 150 MG, QD
  4. ANTIBIOTICS [Concomitant]
  5. CLOZAPINE [Suspect]
     Indication: SCHIZOPHRENIA
     Dosage: UNK
     Dates: start: 20081104

REACTIONS (5)
  - C-REACTIVE PROTEIN INCREASED [None]
  - MALAISE [None]
  - VIRAL INFECTION [None]
  - PYREXIA [None]
  - INFLUENZA LIKE ILLNESS [None]
